FAERS Safety Report 7368961-9 (Version None)
Quarter: 2011Q1

REPORT INFORMATION
  Report Type: 
  Country: None (occurrence: None)
  Receive Date: 20110323
  Receipt Date: 20110224
  Transmission Date: 20110831
  Serious: No
  Sender: FDA-Public Use
  Company Number: US-B.I. PHARMACEUTICALS,INC./RIDGEFIELD-2011-BP-06703BP

PATIENT
  Age: 64 Year
  Sex: Male

DRUGS (11)
  1. HYDROCHLOROTHIAZIDE [Concomitant]
     Indication: HYPERTENSION
     Dosage: 125 MG
  2. LYRICA [Concomitant]
     Indication: NEUROPATHY PERIPHERAL
     Dosage: 300 MG
  3. TAMSULOSIN HCL [Concomitant]
     Indication: HYPERTENSION
     Dosage: 0.4 MG
  4. PRADAXA [Suspect]
     Indication: ATRIAL FIBRILLATION
     Dosage: 300 MG
     Route: 048
     Dates: start: 20101001
  5. METOPROLOL TARTRATE [Concomitant]
     Indication: HYPERTENSION
     Dosage: 100 MG
  6. POT-CHOL [Concomitant]
     Indication: BLOOD POTASSIUM DECREASED
     Dosage: 32 MG
  7. DILAUDID [Concomitant]
     Indication: NEUROPATHY PERIPHERAL
     Dosage: 20 MG
  8. AMLODIPINE BESYLATE AND BENAZEPRIL HCL [Concomitant]
     Indication: HYPERTENSION
  9. TRILIPIX DR [Concomitant]
     Indication: BLOOD CHOLESTEROL ABNORMAL
     Dosage: 135 MG
  10. CYMBALTA [Concomitant]
     Indication: NEUROPATHY PERIPHERAL
     Dosage: 120 MG
  11. NIACIN [Concomitant]
     Indication: BLOOD CHOLESTEROL ABNORMAL
     Dosage: 1500 MG

REACTIONS (1)
  - HYPERHIDROSIS [None]
